FAERS Safety Report 8215701-7 (Version None)
Quarter: 2012Q1

REPORT INFORMATION
  Report Type: 
  Country: None (occurrence: None)
  Receive Date: 20120313
  Receipt Date: 20120302
  Transmission Date: 20120608
  Serious: Yes (Death, Hospitalization)
  Sender: FDA-Public Use
  Company Number: AUR-APL-2012-01319

PATIENT
  Age: 66 Year
  Sex: Male
  Weight: 108.6 kg

DRUGS (40)
  1. ACETAMINOPHEN [Concomitant]
  2. SUCCINYLHOLINE CHLORIDE (SUXAMETHONIUM CHLORIDE) [Concomitant]
  3. FLUCONAZOLE [Concomitant]
  4. NOREPINEPHRINE BITARTRATE [Concomitant]
  5. VECURONIUM BROMIDE [Concomitant]
  6. LEVOTHYROXINE SODIUM [Concomitant]
  7. CALCIUM CARBONATE [Concomitant]
  8. FUROSEMIDE (FUROSEMIDE) [Concomitant]
  9. PHYTONADIONE [Concomitant]
  10. ETOMIDATE [Concomitant]
  11. LIDOCAINE [Concomitant]
  12. CEFTRIAXONE [Suspect]
     Indication: PRODUCT USED FOR UNKNOWN INDICATION
     Dosage: (50 ML), INTRAVENOUS
     Route: 042
     Dates: start: 20110819
  13. SODIUM CHLORIDE 0.9% [Concomitant]
  14. PANTOPRAZOLE [Concomitant]
  15. NOVOLIN R [Concomitant]
  16. LORAZEPAM [Concomitant]
  17. VANCOMYCIN HCL [Suspect]
     Indication: PRODUCT USED FOR UNKNOWN INDICATION
     Dosage: (200 ML), INTRAVENOUS
     Route: 042
     Dates: start: 20110818
  18. ALPRAZOLAM [Concomitant]
  19. DEXTROSE [Concomitant]
  20. PIPERACILLIN AND TAZOBACTAM [Concomitant]
  21. LINEZOLID [Concomitant]
  22. SENNA-MINT WAF [Concomitant]
  23. TAMULOSIN (TAMSULOSIN) [Concomitant]
  24. MIDAZOLAM HCL [Concomitant]
  25. FENTANYL [Concomitant]
  26. IPRATROPIUM BROMIDE [Concomitant]
  27. IRON/MULTIMINERALS/MULTIVITAMINS (IRON W/VITAMINS NOS) [Concomitant]
  28. TRAMADOL HCL [Concomitant]
  29. ENOXAPARIN SODIUM [Concomitant]
  30. ALBUTEROL [Concomitant]
  31. WATER FOR INJECTION (WATER FOR INJECTION) [Concomitant]
  32. HEPARIN [Concomitant]
  33. PHENYLEPHRINE (PHENYLEPHRINE) [Concomitant]
  34. THIAMINE HCL [Concomitant]
  35. ASCORBIC ACID [Concomitant]
  36. FERROUS SULFATE TAB [Concomitant]
  37. LACTULOSE [Concomitant]
  38. OCUVITE (OCUVITE /01053801/) [Concomitant]
  39. HYDROMORPHONE HCL [Concomitant]
  40. SODIUM BICARBONATE IN PLASTIC CONTAINER [Concomitant]

REACTIONS (10)
  - HAEMOGLOBIN DECREASED [None]
  - DIALYSIS [None]
  - HAEMATOCRIT DECREASED [None]
  - MEAN CELL VOLUME INCREASED [None]
  - RENAL FAILURE ACUTE [None]
  - SEPSIS [None]
  - BLOOD CALCIUM DECREASED [None]
  - BLOOD GLUCOSE DECREASED [None]
  - THROMBOCYTOPENIA [None]
  - RED BLOOD CELL COUNT DECREASED [None]
